FAERS Safety Report 8367926-8 (Version None)
Quarter: 2012Q2

REPORT INFORMATION
  Report Type: 
  Country: None (occurrence: None)
  Receive Date: 20120517
  Receipt Date: 20120510
  Transmission Date: 20120825
  Serious: No
  Sender: FDA-Public Use
  Company Number: US-TEVA-338051USA

PATIENT
  Sex: Female
  Weight: 62.652 kg

DRUGS (4)
  1. HYDROCHLOROTHIAZIDE [Concomitant]
     Indication: HYPERTENSION
     Dosage: UNKNOWN NUMBER OF TABLET QD
     Route: 048
  2. COPAXONE [Suspect]
     Indication: MULTIPLE SCLEROSIS
     Route: 058
     Dates: start: 20040316
  3. POTASSIUM CHLORIDE [Concomitant]
     Indication: HYPERTENSION
     Dosage: UNKNOWN NUMBER OF TABLET QD
     Route: 048
  4. ATENOLOL [Concomitant]
     Indication: HYPERTENSION
     Dosage: UNKNOWN NUMBER OF TABLET QD
     Route: 048

REACTIONS (1)
  - TINNITUS [None]
